FAERS Safety Report 5199616-7 (Version None)
Quarter: 2007Q1

REPORT INFORMATION
  Report Type: 
  Country: None (occurrence: None)
  Receive Date: 20070102
  Receipt Date: 20070102
  Transmission Date: 20070707
  Serious: Yes (Death, Hospitalization)
  Sender: FDA-Public Use
  Company Number: None

PATIENT
  Age: 65 Year
  Sex: Female
  Weight: 93 kg

DRUGS (1)
  1. TACROLIMUS [Suspect]
     Indication: LUNG TRANSPLANT REJECTION
     Dosage: VARYING DAILY IV DRIP
     Route: 041
     Dates: start: 20060410, end: 20060424

REACTIONS (8)
  - BRADYCARDIA [None]
  - BRAIN DEATH [None]
  - BRAIN HERNIATION [None]
  - BRAIN OEDEMA [None]
  - ENCEPHALOPATHY [None]
  - GRAND MAL CONVULSION [None]
  - HYPERTENSION [None]
  - RENAL FAILURE [None]
